FAERS Safety Report 7315207-3 (Version None)
Quarter: 2011Q1

REPORT INFORMATION
  Report Type: 
  Country: None (occurrence: None)
  Receive Date: 20110218
  Receipt Date: 20110218
  Transmission Date: 20110831
  Serious: Yes (Life-Threatening)
  Sender: FDA-Public Use
  Company Number: None

PATIENT
  Age: 28 Year
  Sex: Female

DRUGS (2)
  1. DOXYCYCLINE [Concomitant]
  2. OMNIPAQUE 350 [Suspect]
     Indication: COMPUTERISED TOMOGRAM ABNORMAL
     Dates: start: 20110111

REACTIONS (2)
  - PRURITUS [None]
  - PARAESTHESIA [None]
